FAERS Safety Report 7521719-X (Version None)
Quarter: 2011Q2

REPORT INFORMATION
  Report Type: 
  Country: None (occurrence: None)
  Receive Date: 20110603
  Receipt Date: 20110510
  Transmission Date: 20111010
  Serious: Yes (Hospitalization, Other)
  Sender: FDA-Public Use
  Company Number: US-BAYER-2010-003180

PATIENT
  Age: 25 Year
  Sex: Female
  Weight: 56.689 kg

DRUGS (3)
  1. YAZ [Suspect]
     Indication: PRODUCT USED FOR UNKNOWN INDICATION
     Dosage: UNK
     Route: 048
     Dates: start: 20070301
  2. IBUPROFEN [Concomitant]
     Dosage: UNK
     Dates: start: 20090801
  3. ADVIL LIQUI-GELS [Concomitant]
     Dosage: UNK
     Dates: start: 20090801

REACTIONS (1)
  - CEREBROVASCULAR ACCIDENT [None]
